FAERS Safety Report 6086663-6 (Version None)
Quarter: 2009Q1

REPORT INFORMATION
  Report Type: 
  Country: None (occurrence: None)
  Receive Date: 20090223
  Receipt Date: 20090123
  Transmission Date: 20090719
  Serious: No
  Sender: FDA-Public Use
  Company Number: US-BAYER-200841343NA

PATIENT
  Age: 63 Year
  Sex: Male

DRUGS (3)
  1. LEVITRA [Suspect]
     Indication: ERECTILE DYSFUNCTION
     Dosage: TOTAL DAILY DOSE: 10 MG  UNIT DOSE: 20 MG
     Dates: start: 20081220, end: 20081220
  2. HYDROCHLOROTHIAZIDE [Concomitant]
     Dosage: TOTAL DAILY DOSE: 25 MG
  3. BENICAR [Concomitant]
     Dosage: TOTAL DAILY DOSE: 40 MG

REACTIONS (8)
  - ABDOMINAL DISCOMFORT [None]
  - CHILLS [None]
  - HEADACHE [None]
  - INFLUENZA LIKE ILLNESS [None]
  - NASAL CONGESTION [None]
  - RETCHING [None]
  - SKIN DISCOLOURATION [None]
  - VOMITING [None]
